FAERS Safety Report 5644084-1 (Version None)
Quarter: 2008Q1

REPORT INFORMATION
  Report Type: 
  Country: None (occurrence: None)
  Receive Date: 20080226
  Receipt Date: 20080213
  Transmission Date: 20080703
  Serious: No
  Sender: FDA-Public Use
  Company Number: B0509016A

PATIENT
  Age: 24 Month
  Sex: Female

DRUGS (2)
  1. FLOVENT DISKUS 100 [Suspect]
     Indication: ASTHMA
     Dosage: TWICE PER DAY / INHALED VIA
     Route: 055
     Dates: start: 20070901
  2. DESLORATADINE [Concomitant]

REACTIONS (2)
  - CYANOSIS [None]
  - LIP SWELLING [None]
